FAERS Safety Report 13242939 (Version 1)
Quarter: 2017Q1

REPORT INFORMATION
  Report Type: Spontaneous
  Country: US (occurrence: US)
  Receive Date: 20170216
  Receipt Date: 20170216
  Transmission Date: 20170428
  Serious: No
  Sender: FDA-Public Use
  Company Number: None

PATIENT
  Age: 30 Year
  Sex: Female
  Weight: 58.5 kg

DRUGS (1)
  1. OXYCODONE 10/325 [Suspect]
     Active Substance: ACETAMINOPHEN\OXYCODONE HYDROCHLORIDE
     Indication: PAIN
     Route: 048

REACTIONS (6)
  - Drug ineffective [None]
  - Product substitution issue [None]
  - Dizziness [None]
  - Nausea [None]
  - Malaise [None]
  - Irritability [None]

NARRATIVE: CASE EVENT DATE: 20170213
